FAERS Safety Report 11748175 (Version 1)
Quarter: 2015Q4

REPORT INFORMATION
  Report Type: Report from Study
  Country: CN (occurrence: CN)
  Receive Date: 20151117
  Receipt Date: 20151117
  Transmission Date: 20160304
  Serious: Yes (Hospitalization)
  Sender: FDA-Public Use
  Company Number: CN-UCBSA-2015036210

PATIENT
  Age: 25 Year
  Sex: Male
  Weight: 71 kg

DRUGS (2)
  1. LACOSAMIDE EP [Suspect]
     Active Substance: LACOSAMIDE
     Indication: EPILEPSY
     Dosage: 400 MG, 2X/DAY (BID)
     Route: 048
     Dates: start: 20131014, end: 20151106
  2. PHENOBARBITAL. [Concomitant]
     Active Substance: PHENOBARBITAL
     Indication: EPILEPSY
     Dosage: 60 MG, 2X/DAY (BID)
     Route: 048
     Dates: start: 20140627, end: 20151106

REACTIONS (1)
  - Epilepsy [Recovering/Resolving]

NARRATIVE: CASE EVENT DATE: 20151103
